FAERS Safety Report 4980650-4 (Version None)
Quarter: 2006Q2

REPORT INFORMATION
  Report Type: 
  Country: None (occurrence: None)
  Receive Date: 20060424
  Receipt Date: 20060215
  Transmission Date: 20061013
  Serious: Yes (Death, Life-Threatening, Hospitalization)
  Sender: FDA-Public Use
  Company Number: DE-ROCHE-436505

PATIENT
  Age: 60 Year
  Sex: Male

DRUGS (28)
  1. ZENAPAX [Suspect]
     Dosage: A ONE OFF DOSE OF 2MG/KG GIVEN 24 HOURS PRE-TRANSPLANT.
     Route: 042
     Dates: start: 20030424, end: 20030424
  2. ZENAPAX [Suspect]
     Dosage: 1 MG/KG GIVEN ONCE EVERY 2 WEEKS FOR 4 DOSES.
     Route: 042
     Dates: start: 20030508, end: 20030618
  3. MYCOPHENOLATE MOFETIL [Suspect]
     Route: 048
     Dates: start: 20030424
  4. MYCOPHENOLATE MOFETIL [Suspect]
     Route: 048
  5. TACROLIMUS [Suspect]
     Route: 048
     Dates: start: 20030424, end: 20030424
  6. TACROLIMUS [Suspect]
     Route: 048
     Dates: start: 20030425, end: 20030502
  7. TACROLIMUS [Suspect]
     Route: 048
     Dates: start: 20030503, end: 20030506
  8. TACROLIMUS [Suspect]
     Route: 048
     Dates: start: 20030507, end: 20030507
  9. TACROLIMUS [Suspect]
     Route: 048
     Dates: start: 20030508
  10. TACROLIMUS [Suspect]
     Route: 048
  11. SOLU-DECORTIN H [Suspect]
     Dosage: 1 X PRE OP AND 1 X INTRA OP
     Route: 065
     Dates: start: 20030424, end: 20030424
  12. DECORTIN H [Suspect]
     Route: 065
     Dates: start: 20030424, end: 20030427
  13. DECORTIN H [Suspect]
     Route: 065
     Dates: start: 20030428, end: 20030429
  14. DECORTIN H [Suspect]
     Route: 065
     Dates: start: 20030430
  15. CALCET [Concomitant]
     Dates: start: 20030426
  16. ROCALTROL [Concomitant]
     Dosage: DOSE= 0.25 (UNITS UNKNOWN)
     Dates: start: 20030426
  17. SPASMEX [Concomitant]
     Dosage: DOSE = 15 (UNITS UNKNOWN)
     Dates: start: 20030427
  18. AMPHO MORONAL [Concomitant]
     Dosage: 4 X1 PIP
     Dates: start: 20030426
  19. UNACID [Concomitant]
     Dates: start: 20030424
  20. ACC BRAUSETABLETTEN [Concomitant]
     Dates: start: 20030430
  21. RANITIDINE [Concomitant]
     Dates: start: 20030424
  22. LIQUAEMIN [Concomitant]
     Dosage: DOSE 5000 (UNKNOWN UNITS AND REGIMEN)
     Route: 058
     Dates: start: 20030425
  23. PANTOZOL [Concomitant]
     Dates: start: 20030425
  24. ACTONEL [Concomitant]
     Dates: start: 20030426
  25. ROCALTROL [Concomitant]
     Dates: start: 20030426
  26. UNACID [Concomitant]
  27. BAYOTENSIN [Concomitant]
  28. DILATREND [Concomitant]

REACTIONS (8)
  - ASCITES [None]
  - ASPHYXIA [None]
  - GENERAL PHYSICAL HEALTH DETERIORATION [None]
  - HEPATIC NEOPLASM MALIGNANT [None]
  - ILEUS [None]
  - LUNG ADENOCARCINOMA [None]
  - PYREXIA [None]
  - SHOCK [None]
